FAERS Safety Report 19047920 (Version 1)
Quarter: 2021Q1

REPORT INFORMATION
  Report Type: Other
  Country: DE (occurrence: DE)
  Receive Date: 20210324
  Receipt Date: 20210324
  Transmission Date: 20210420
  Serious: No
  Sender: FDA-Public Use
  Company Number: DE-LUPIN PHARMACEUTICALS INC.-2021-03452

PATIENT
  Age: 36 Year
  Sex: Male
  Weight: 82 kg

DRUGS (1)
  1. OXYCODONE [Suspect]
     Active Substance: OXYCODONE
     Indication: PAIN
     Dosage: 60 MILLIGRAM, BID (RETARD, MORNING AND EVENING)
     Route: 048
     Dates: start: 20150901

REACTIONS (1)
  - Constipation [Unknown]
